FAERS Safety Report 17794082 (Version 2)
Quarter: 2020Q2

REPORT INFORMATION
  Report Type: Spontaneous
  Country: US (occurrence: US)
  Receive Date: 20200515
  Receipt Date: 20200528
  Transmission Date: 20200714
  Serious: Yes (Hospitalization)
  Sender: FDA-Public Use
  Company Number: US-CELGENEUS-USA-20200503132

PATIENT
  Age: 84 Year
  Sex: Male

DRUGS (1)
  1. INREBIC [Suspect]
     Active Substance: FEDRATINIB HYDROCHLORIDE
     Indication: POLYCYTHAEMIA VERA
     Dosage: 400 MILLIGRAM
     Route: 048
     Dates: start: 20200220

REACTIONS (6)
  - Pneumonia [Unknown]
  - Pulmonary oedema [Unknown]
  - White blood cell count increased [Unknown]
  - Anaemia [Unknown]
  - Product dose omission [Recovered/Resolved]
  - Full blood count decreased [Unknown]

NARRATIVE: CASE EVENT DATE: 20200430
